FAERS Safety Report 4553360-5 (Version None)
Quarter: 2005Q1

REPORT INFORMATION
  Report Type: 
  Country: None (occurrence: None)
  Receive Date: 20050112
  Receipt Date: 20041227
  Transmission Date: 20050727
  Serious: No
  Sender: FDA-Public Use
  Company Number: FR_040704452

PATIENT
  Age: 17 Year
  Sex: Female

DRUGS (2)
  1. ZYPREXA [Suspect]
  2. VALPROATE SODIUM [Concomitant]

REACTIONS (2)
  - NEUTROPENIA [None]
  - VOMITING [None]
